FAERS Safety Report 17085184 (Version 2)
Quarter: 2019Q4

REPORT INFORMATION
  Report Type: Spontaneous
  Country: IR (occurrence: IR)
  Receive Date: 20191127
  Receipt Date: 20191129
  Transmission Date: 20200122
  Serious: Yes (Hospitalization, Disabling, Other)
  Sender: FDA-Public Use
  Company Number: IR-VISTAPHARM, INC.-VER201911-001325

PATIENT
  Age: 34 Year
  Sex: Male

DRUGS (1)
  1. METHADONE [Suspect]
     Active Substance: METHADONE HYDROCHLORIDE
     Indication: SUICIDE ATTEMPT
     Dosage: 40 MG

REACTIONS (12)
  - Toxicity to various agents [Unknown]
  - Blood creatinine increased [Unknown]
  - Rhabdomyolysis [Unknown]
  - Coagulation test abnormal [Unknown]
  - Deafness [Not Recovered/Not Resolved]
  - Thrombocytopenia [Unknown]
  - Loss of consciousness [Unknown]
  - Transaminases abnormal [Unknown]
  - Intentional overdose [Unknown]
  - Respiratory acidosis [Unknown]
  - Deafness neurosensory [Not Recovered/Not Resolved]
  - Metabolic acidosis [Recovered/Resolved]
